FAERS Safety Report 12620731 (Version 3)
Quarter: 2016Q3

REPORT INFORMATION
  Report Type: Spontaneous
  Country: US (occurrence: US)
  Receive Date: 20160804
  Receipt Date: 20160808
  Transmission Date: 20161109
  Serious: No
  Sender: FDA-Public Use
  Company Number: US-BEH-2016062370

PATIENT
  Age: 65 Year
  Sex: Female
  Weight: 86 kg

DRUGS (23)
  1. DIPHENHYDRAMINE. [Concomitant]
     Active Substance: DIPHENHYDRAMINE
  2. EPIPEN [Concomitant]
     Active Substance: EPINEPHRINE
  3. LOSARTAN. [Concomitant]
     Active Substance: LOSARTAN
  4. NORCO [Concomitant]
     Active Substance: ACETAMINOPHEN\HYDROCODONE BITARTRATE
  5. CYCLOBENZAPRINE [Concomitant]
     Active Substance: CYCLOBENZAPRINE
  6. MOBIC [Concomitant]
     Active Substance: MELOXICAM
  7. ZANTAC [Concomitant]
     Active Substance: RANITIDINE HYDROCHLORIDE
  8. LOPRESSOR [Concomitant]
     Active Substance: METOPROLOL TARTRATE
  9. TYLENOL [Concomitant]
     Active Substance: ACETAMINOPHEN
  10. HIZENTRA [Suspect]
     Active Substance: HUMAN IMMUNOGLOBULIN G
     Indication: IMMUNODEFICIENCY COMMON VARIABLE
     Dosage: AS DIRECTED
     Route: 058
     Dates: start: 20110207
  11. VENTOLIN [Concomitant]
     Active Substance: ALBUTEROL SULFATE
  12. SINGULAIR [Concomitant]
     Active Substance: MONTELUKAST SODIUM
  13. KEFLEX [Concomitant]
     Active Substance: CEPHALEXIN
  14. PROBIOTIC [Concomitant]
     Active Substance: PROBIOTICS NOS
  15. NAPROXEN. [Concomitant]
     Active Substance: NAPROXEN
  16. HIZENTRA [Suspect]
     Active Substance: HUMAN IMMUNOGLOBULIN G
     Route: 058
  17. STOOL SOFTNER [Concomitant]
     Active Substance: DOCUSATE SODIUM
  18. TRAZODONE [Concomitant]
     Active Substance: TRAZODONE HYDROCHLORIDE
  19. LIDOCAINE/PRILOCAINE [Concomitant]
     Active Substance: LIDOCAINE\PRILOCAINE
  20. KLONOPIN [Concomitant]
     Active Substance: CLONAZEPAM
  21. HIZENTRA [Suspect]
     Active Substance: HUMAN IMMUNOGLOBULIN G
     Route: 058
  22. ZOCOR [Concomitant]
     Active Substance: SIMVASTATIN
  23. ABILIFY [Concomitant]
     Active Substance: ARIPIPRAZOLE

REACTIONS (1)
  - Urinary tract infection [Unknown]

NARRATIVE: CASE EVENT DATE: 20160218
